FAERS Safety Report 25437288 (Version 1)
Quarter: 2025Q2

REPORT INFORMATION
  Report Type: Spontaneous
  Country: US (occurrence: US)
  Receive Date: 20250616
  Receipt Date: 20250616
  Transmission Date: 20250716
  Serious: No
  Sender: AUROBINDO
  Company Number: US-AUROBINDO-AUR-APL-2025-006200

PATIENT
  Age: 64 Year
  Sex: Female
  Weight: 53.52 kg

DRUGS (1)
  1. DICLOFENAC SODIUM [Suspect]
     Active Substance: DICLOFENAC SODIUM
     Indication: Jaw disorder
     Dosage: UNK, TWO TIMES A DAY
     Route: 065

REACTIONS (1)
  - Rash [Not Recovered/Not Resolved]
